FAERS Safety Report 5026252-5 (Version None)
Quarter: 2006Q2

REPORT INFORMATION
  Report Type: 
  Country: None (occurrence: None)
  Receive Date: 20060608
  Receipt Date: 20060526
  Transmission Date: 20061013
  Serious: Yes (Hospitalization)
  Sender: FDA-Public Use
  Company Number: 2006065196

PATIENT
  Age: 70 Year
  Sex: Male
  Weight: 68.5 kg

DRUGS (3)
  1. SUTENT [Suspect]
     Indication: RENAL CELL CARCINOMA STAGE UNSPECIFIED
     Dosage: 50 MG (50 MG, DAILY - INTERVAL: EVERYDAY), ORAL
     Route: 048
     Dates: start: 20060307
  2. BETAMETHASONE [Concomitant]
  3. PETROLATUM (PETROLATUM) [Concomitant]

REACTIONS (9)
  - ARRHYTHMIA [None]
  - ATRIAL FIBRILLATION [None]
  - AUTOIMMUNE THYROIDITIS [None]
  - GOITRE [None]
  - HYPERTHYROIDISM [None]
  - JAUNDICE [None]
  - MALAISE [None]
  - PANCYTOPENIA [None]
  - THYROIDITIS [None]
